FAERS Safety Report 17861762 (Version 1)
Quarter: 2020Q2

REPORT INFORMATION
  Report Type: Report from Study
  Country: BR (occurrence: BR)
  Receive Date: 20200604
  Receipt Date: 20200604
  Transmission Date: 20200714
  Serious: Yes (Other)
  Sender: FDA-Public Use
  Company Number: NVSC2020BR155600

PATIENT
  Age: 86 Year
  Sex: Female

DRUGS (2)
  1. EXELON [Suspect]
     Active Substance: RIVASTIGMINE TARTRATE
     Indication: PRODUCT USED FOR UNKNOWN INDICATION
     Dosage: 13.3 OT
     Route: 062
  2. CLONAZEPAM. [Concomitant]
     Active Substance: CLONAZEPAM
     Indication: PRODUCT USED FOR UNKNOWN INDICATION
     Route: 065

REACTIONS (10)
  - Cardiac failure [Unknown]
  - Memory impairment [Recovering/Resolving]
  - Disorientation [Recovering/Resolving]
  - Gait disturbance [Unknown]
  - Diabetes mellitus [Unknown]
  - Dependence [Unknown]
  - Hypertension [Unknown]
  - Cognitive disorder [Unknown]
  - Dementia Alzheimer^s type [Unknown]
  - Asthenia [Unknown]
